FAERS Safety Report 8168590-3 (Version None)
Quarter: 2012Q1

REPORT INFORMATION
  Report Type: 
  Country: None (occurrence: None)
  Receive Date: 20120227
  Receipt Date: 20120222
  Transmission Date: 20120608
  Serious: Yes (Other)
  Sender: FDA-Public Use
  Company Number: MX-ABBOTT-12P-107-0908667-00

PATIENT
  Sex: Male
  Weight: 94 kg

DRUGS (4)
  1. ASPIRIN [Concomitant]
     Indication: HERNIA
  2. HUMIRA [Suspect]
     Indication: ANKYLOSING SPONDYLITIS
     Route: 058
     Dates: start: 20090101
  3. ASPIRIN [Concomitant]
     Indication: CARDIAC DISORDER
     Route: 048
     Dates: start: 20090101
  4. ANTAIGIN [Concomitant]
     Indication: ANKYLOSING SPONDYLITIS
     Route: 048
     Dates: start: 20090101

REACTIONS (4)
  - RETINAL DETACHMENT [None]
  - URTICARIA [None]
  - HERNIA [None]
  - EYE OPERATION [None]
